FAERS Safety Report 12263643 (Version 5)
Quarter: 2016Q3

REPORT INFORMATION
  Report Type: Report from Study
  Country: US (occurrence: US)
  Receive Date: 20160413
  Receipt Date: 20160913
  Transmission Date: 20161109
  Serious: No
  Sender: FDA-Public Use
  Company Number: PHEH2016US008953

PATIENT
  Sex: Male
  Weight: 106.58 kg

DRUGS (4)
  1. EXTAVIA [Suspect]
     Active Substance: INTERFERON BETA-1B
     Dosage: 0.125 MG(0.5ML), QOD (WEEKS 3-4)
     Route: 058
  2. EXTAVIA [Suspect]
     Active Substance: INTERFERON BETA-1B
     Dosage: 0.25MG (1 ML),QOD (WEEKS 7+)
     Route: 058
  3. EXTAVIA [Suspect]
     Active Substance: INTERFERON BETA-1B
     Indication: MULTIPLE SCLEROSIS
     Dosage: 0.0625 MG(0.25ML), QOD (WEEKS 1-2)
     Route: 058
     Dates: start: 20160406
  4. EXTAVIA [Suspect]
     Active Substance: INTERFERON BETA-1B
     Dosage: 0.1875MG (0.75ML),QOD (WEEKS 5-6)
     Route: 058

REACTIONS (6)
  - Injection site pain [Recovered/Resolved]
  - Injection site nerve damage [Unknown]
  - Injection site extravasation [Unknown]
  - Feeling hot [Unknown]
  - Weight decreased [Unknown]
  - Paraesthesia [Unknown]
